FAERS Safety Report 9177584 (Version 1)
Quarter: 2013Q1

REPORT INFORMATION
  Report Type: Spontaneous
  Country: US (occurrence: US)
  Receive Date: 20130321
  Receipt Date: 20130321
  Transmission Date: 20140127
  Serious: Yes (Hospitalization, Other)
  Sender: FDA-Public Use
  Company Number: US-BAYER-2013-034284

PATIENT
  Age: 81 Year
  Sex: Male
  Weight: 90 kg

DRUGS (13)
  1. BAYER ASPIRIN REGIMEN ADULT LOW STRENGTH [Suspect]
     Indication: ARTHRALGIA
     Dosage: 81 MG, QD
  2. ALEVE [Interacting]
     Indication: ARTHRALGIA
  3. IBUPROFEN [Suspect]
     Indication: ARTHRALGIA
  4. XARELTO [Interacting]
     Indication: ATRIAL FIBRILLATION
     Dosage: 20 MG, QD
     Route: 048
     Dates: start: 20121224, end: 20130111
  5. XARELTO [Interacting]
     Indication: CEREBROVASCULAR ACCIDENT PROPHYLAXIS
  6. FERROUS SULFATE [Concomitant]
     Dosage: 325 MG, UNK
     Route: 048
  7. BLOOD CELLS, PACKED HUMAN [Concomitant]
     Dosage: 2 DF, UNK
     Dates: start: 20130112, end: 20130112
  8. BLOOD CELLS, PACKED HUMAN [Concomitant]
     Dosage: 2 DF, UNK
     Dates: start: 20130114, end: 20130114
  9. DRONEDARONE [Suspect]
     Indication: ATRIAL FIBRILLATION
     Dosage: 400 MG, BID
     Dates: start: 20121224
  10. LOVASTATIN [Concomitant]
     Dosage: 40 MG, QD
     Route: 048
  11. METOPROLOL TARTRATE [Concomitant]
     Dosage: 12.5 MG, BID
     Route: 048
  12. PANTOPRAZOLE [Concomitant]
     Dosage: 40 MG, BID
     Route: 048
  13. ALPRAZOLAM [Concomitant]
     Dosage: 0.5 MG, QD
     Route: 048

REACTIONS (3)
  - Gastrointestinal haemorrhage [Recovering/Resolving]
  - Melaena [Recovering/Resolving]
  - Duodenal ulcer [Recovering/Resolving]
